FAERS Safety Report 23284644 (Version 10)
Quarter: 2025Q1

REPORT INFORMATION
  Report Type: Spontaneous
  Country: US (occurrence: US)
  Receive Date: 20231211
  Receipt Date: 20250303
  Transmission Date: 20250409
  Serious: Yes (Other)
  Sender: PFIZER
  Company Number: US-PFIZER INC-PV202300199100

PATIENT
  Age: 73 Year
  Sex: Female
  Weight: 54.88 kg

DRUGS (5)
  1. IBRANCE [Suspect]
     Active Substance: PALBOCICLIB
     Indication: Breast cancer female
     Dates: end: 202406
  2. IBRANCE [Suspect]
     Active Substance: PALBOCICLIB
     Dates: start: 202408
  3. IBRANCE [Suspect]
     Active Substance: PALBOCICLIB
     Dates: start: 20241030
  4. IBRANCE [Suspect]
     Active Substance: PALBOCICLIB
     Route: 048
  5. IBRANCE [Suspect]
     Active Substance: PALBOCICLIB
     Dosage: 75 MG, 1X/DAY
     Route: 048
     Dates: end: 20250125

REACTIONS (13)
  - Auditory disorder [Not Recovered/Not Resolved]
  - Brain fog [Unknown]
  - Dysphonia [Unknown]
  - COVID-19 [Unknown]
  - Oropharyngeal pain [Unknown]
  - Nasal disorder [Unknown]
  - Headache [Unknown]
  - Cough [Unknown]
  - Insomnia [Unknown]
  - Hot flush [Unknown]
  - Fatigue [Unknown]
  - Asthenia [Unknown]
  - Movement disorder [Unknown]

NARRATIVE: CASE EVENT DATE: 20250218
